FAERS Safety Report 8200751-7 (Version None)
Quarter: 2012Q1

REPORT INFORMATION
  Report Type: 
  Country: None (occurrence: None)
  Receive Date: 20120306
  Receipt Date: 20120220
  Transmission Date: 20120608
  Serious: Yes (Death, Hospitalization, Other)
  Sender: FDA-Public Use
  Company Number: FK201200498

PATIENT
  Age: 65 Year
  Sex: Male

DRUGS (2)
  1. METHYLPREDNISOLONE [Suspect]
     Indication: ACUTE RESPIRATORY DISTRESS SYNDROME
     Dosage: 2 MG/KG, PER DAY,
  2. PIPERACILLIN AND TAZOBACTAM [Concomitant]

REACTIONS (13)
  - VASOPLEGIA SYNDROME [None]
  - PNEUMONIA [None]
  - BLOOD CREATINE PHOSPHOKINASE INCREASED [None]
  - ERYTHEMA [None]
  - MULTI-ORGAN FAILURE [None]
  - STAPHYLOCOCCUS TEST POSITIVE [None]
  - ESCHAR [None]
  - ZYGOMYCOSIS [None]
  - FUNGAL INFECTION [None]
  - SEPSIS [None]
  - METABOLIC ACIDOSIS [None]
  - ENTEROCOCCUS TEST POSITIVE [None]
  - BLOOD CULTURE POSITIVE [None]
